FAERS Safety Report 15609479 (Version 1)
Quarter: 2018Q4

REPORT INFORMATION
  Report Type: Spontaneous
  Country: NO (occurrence: NO)
  Receive Date: 20181112
  Receipt Date: 20181112
  Transmission Date: 20190205
  Serious: Yes (Other)
  Sender: FDA-Public Use
  Company Number: NO-MYLANLABS-2018M1085267

PATIENT
  Age: 3 Decade
  Sex: Female

DRUGS (6)
  1. METHOTREXATE. [Suspect]
     Active Substance: METHOTREXATE
     Dosage: INITIAL DOSE UNKNOWN; DOSE GRADUALLY ESCALATED UP TO 25 MG/WEEK BUT WITHOUT EFFECT
     Route: 065
  2. BELIMUMAB [Suspect]
     Active Substance: BELIMUMAB
     Indication: SYSTEMIC LUPUS ERYTHEMATOSUS
     Dosage: 10 MG/KG, MONTHLY, FORMULATION: INFUSION
     Route: 065
     Dates: start: 201404
  3. METHOTREXATE. [Suspect]
     Active Substance: METHOTREXATE
     Indication: SYSTEMIC LUPUS ERYTHEMATOSUS
     Dosage: INITIAL DOSE UNKNOWN; DOSE GRADUALLY ESCALATED UP TO 25 MG/WEEK BUT WITHOUT EFFECT
     Route: 065
  4. HYDROXYCHLOROQUINE [Suspect]
     Active Substance: HYDROXYCHLOROQUINE
     Indication: SYSTEMIC LUPUS ERYTHEMATOSUS
     Dosage: 400 MG, QD
     Route: 065
  5. PREDNISONE. [Suspect]
     Active Substance: PREDNISONE
     Indication: SYSTEMIC LUPUS ERYTHEMATOSUS
     Route: 065
  6. AZATHIOPRINE. [Suspect]
     Active Substance: AZATHIOPRINE
     Indication: SYSTEMIC LUPUS ERYTHEMATOSUS
     Dosage: 75 MG, BID
     Route: 065

REACTIONS (3)
  - Maternal exposure during breast feeding [Unknown]
  - Maternal exposure during pregnancy [Recovered/Resolved]
  - Drug ineffective [Unknown]
